FAERS Safety Report 5328723-0 (Version None)
Quarter: 2007Q2

REPORT INFORMATION
  Report Type: 
  Country: None (occurrence: None)
  Receive Date: 20070518
  Receipt Date: 20070517
  Transmission Date: 20071010
  Serious: Yes (Death)
  Sender: FDA-Public Use
  Company Number: US-JNJFOC-20070504219

PATIENT
  Sex: Female

DRUGS (8)
  1. INVEGA [Suspect]
     Indication: SCHIZOAFFECTIVE DISORDER
     Route: 048
  2. INVEGA [Suspect]
     Indication: BIPOLAR DISORDER
     Route: 048
  3. GABAPENTIN [Concomitant]
  4. GABAPENTIN [Concomitant]
  5. RISPERDAL [Concomitant]
  6. BENZTROPINE [Concomitant]
  7. ALPRAZOLAM [Concomitant]
     Indication: ANXIETY
  8. CITALOPRAM HYDROBROMIDE [Concomitant]
     Indication: DEPRESSION

REACTIONS (1)
  - CARDIAC DISORDER [None]
